FAERS Safety Report 21582066 (Version 1)
Quarter: 2022Q4

REPORT INFORMATION
  Report Type: Report from Study
  Country: FR (occurrence: FR)
  Receive Date: 20221111
  Receipt Date: 20221111
  Transmission Date: 20230112
  Serious: Yes (Hospitalization, Other)
  Sender: FDA-Public Use
  Company Number: FR-BRISTOL-MYERS SQUIBB COMPANY-2022-135172

PATIENT
  Age: 73 Year
  Sex: Female

DRUGS (2)
  1. IPILIMUMAB [Suspect]
     Active Substance: IPILIMUMAB
     Indication: Malignant melanoma
     Dosage: 3 MILLIGRAM PER KILOGRAM, EVERY 3 WEEKS, CYCLE 4,
     Route: 065
     Dates: start: 20220317, end: 20220520
  2. NIVOLUMAB [Suspect]
     Active Substance: NIVOLUMAB
     Indication: Malignant melanoma
     Dosage: 1 MILLIGRAM PER KILOGRAM, EVERY 3 WEEKS, CYCLE 4
     Route: 065
     Dates: start: 20220314, end: 20220520

REACTIONS (2)
  - Immune-mediated enterocolitis [Recovered/Resolved with Sequelae]
  - Acute kidney injury [Unknown]

NARRATIVE: CASE EVENT DATE: 20220626
